FAERS Safety Report 9971562 (Version 2)
Quarter: 2014Q1

REPORT INFORMATION
  Report Type: Report from Study
  Country: US (occurrence: US)
  Receive Date: 20140306
  Receipt Date: 20140306
  Transmission Date: 20141002
  Serious: No
  Sender: FDA-Public Use
  Company Number: US-ABBVIE-13P-163-1131517-00

PATIENT
  Age: 61 Year
  Sex: Female

DRUGS (7)
  1. HUMIRA [Suspect]
     Indication: PSORIASIS
     Dates: start: 20130628
  2. BAYER ASPIRIN [Concomitant]
     Indication: PRODUCT USED FOR UNKNOWN INDICATION
  3. PIOGLITAZONE [Concomitant]
     Indication: DIABETES MELLITUS
  4. BENICAR [Concomitant]
     Indication: HYPERTENSION
     Dosage: 20/12.5 EVERY DAY ^CTT^
  5. PRAVASTATIN [Concomitant]
     Indication: BLOOD CHOLESTEROL
  6. METOPROLOL [Concomitant]
     Indication: HYPERTENSION
  7. NEXIUM [Concomitant]
     Indication: GASTROOESOPHAGEAL REFLUX DISEASE

REACTIONS (4)
  - Injection site bruising [Recovered/Resolved]
  - Injection site pain [Recovered/Resolved]
  - Injection site paraesthesia [Recovered/Resolved]
  - Injection site haemorrhage [Recovered/Resolved]
